FAERS Safety Report 10178530 (Version 1)
Quarter: 2014Q2

REPORT INFORMATION
  Report Type: Spontaneous
  Country: US (occurrence: None)
  Receive Date: 20140516
  Receipt Date: 20140516
  Transmission Date: 20141212
  Serious: Yes (Other)
  Sender: FDA-Public Use
  Company Number: None

PATIENT
  Age: 53 Year
  Sex: Female
  Weight: 81.8 kg

DRUGS (1)
  1. ATOVAQUONE/PROGUANIL [Suspect]
     Indication: MALARIA PROPHYLAXIS
     Dosage: AFTER 3-17-2014; 1QD X 6-7 DAYS DAILY PO
     Dates: start: 20140317

REACTIONS (6)
  - Nausea [None]
  - Vomiting [None]
  - Diarrhoea [None]
  - Dizziness [None]
  - Headache [None]
  - Abdominal pain [None]
